FAERS Safety Report 17245355 (Version 2)
Quarter: 2020Q1

REPORT INFORMATION
  Report Type: Spontaneous
  Country: US (occurrence: US)
  Receive Date: 20200108
  Receipt Date: 20200325
  Transmission Date: 20200409
  Serious: No
  Sender: FDA-Public Use
  Company Number: US-ASTRAZENECA-2019SF80726

PATIENT
  Age: 26782 Day
  Sex: Female

DRUGS (13)
  1. BABY ASA [Concomitant]
     Active Substance: ASPIRIN
  2. VENTOLIN HFA INHALER [Concomitant]
     Indication: FASCIOTOMY
  3. XANAX [Concomitant]
     Active Substance: ALPRAZOLAM
  4. FLUTICASONE. [Concomitant]
     Active Substance: FLUTICASONE
     Indication: NASAL INJURY
  5. BEVESPI AEROSPHERE [Suspect]
     Active Substance: FORMOTEROL FUMARATE\GLYCOPYRROLATE
     Dosage: 9MCG/4.8MCG, TWO PUFFS TWO TIMES A DAY
     Route: 055
     Dates: start: 20191210
  6. METOPROLOL SUCCINATE. [Concomitant]
     Active Substance: METOPROLOL SUCCINATE
  7. DICYCLOMINE [Concomitant]
     Active Substance: DICYCLOMINE HYDROCHLORIDE
     Indication: ABDOMINAL PAIN
  8. LOSARTAN HCTZ COMBO [Concomitant]
     Dosage: DAILY
  9. LEVOTHYROXINE. [Concomitant]
     Active Substance: LEVOTHYROXINE
     Dosage: 137
  10. METOCLOPRAMIDE. [Concomitant]
     Active Substance: METOCLOPRAMIDE
     Indication: MALIGNANT NEOPLASM OF UNKNOWN PRIMARY SITE
  11. AMLODIPINE [Concomitant]
     Active Substance: AMLODIPINE BESYLATE
  12. OMEPRAZOLE. [Concomitant]
     Active Substance: OMEPRAZOLE
  13. ATORVASTATIN [Concomitant]
     Active Substance: ATORVASTATIN

REACTIONS (6)
  - Wrong technique in device usage process [Not Recovered/Not Resolved]
  - Rhinalgia [Unknown]
  - Abdominal pain [Unknown]
  - Dyspnoea [Unknown]
  - Device issue [Unknown]
  - Chronic obstructive pulmonary disease [Unknown]

NARRATIVE: CASE EVENT DATE: 20191210
